FAERS Safety Report 5119886-0 (Version None)
Quarter: 2006Q4

REPORT INFORMATION
  Report Type: 
  Country: None (occurrence: None)
  Receive Date: 20061003
  Receipt Date: 20060919
  Transmission Date: 20070319
  Serious: Yes (Hospitalization)
  Sender: FDA-Public Use
  Company Number: PHHO2006CA15644

PATIENT
  Age: 94 Year
  Sex: Female

DRUGS (8)
  1. HYDROCHLOROTHIAZIDE [Suspect]
     Dosage: 12.5 MG, QD
     Route: 048
     Dates: start: 20060519, end: 20060623
  2. DONEPEZIL HYDROCHLORIDE [Concomitant]
     Indication: VASCULAR DEMENTIA
     Dosage: 10 MG, QD
     Route: 048
     Dates: start: 20060519
  3. DONEPEZIL HYDROCHLORIDE [Concomitant]
     Dosage: 5 MG, QD
     Route: 048
     Dates: start: 20060403, end: 20060518
  4. ASPIRIN [Concomitant]
  5. CALCIUM CARBONATE [Concomitant]
  6. VITAMIN D [Concomitant]
  7. DILTIAZEM HCL [Concomitant]
  8. MOTRIN [Concomitant]

REACTIONS (6)
  - ASTHENIA [None]
  - DEPRESSION [None]
  - FALL [None]
  - LABYRINTHITIS [None]
  - NAUSEA [None]
  - VERTIGO [None]
